FAERS Safety Report 21698559 (Version 1)
Quarter: 2022Q4

REPORT INFORMATION
  Report Type: Spontaneous
  Country: CN (occurrence: CN)
  Receive Date: 20221208
  Receipt Date: 20221208
  Transmission Date: 20230112
  Serious: Yes (Other)
  Sender: FDA-Public Use
  Company Number: CN-BAXTER-2022BAX026078

PATIENT
  Age: 80 Year
  Sex: Female

DRUGS (1)
  1. CALCIUM CHLORIDE\DEXTROSE\MAGNESIUM CHLORIDE\SODIUM CHLORIDE\SODIUM LA [Suspect]
     Active Substance: CALCIUM CHLORIDE\DEXTROSE\MAGNESIUM CHLORIDE\SODIUM CHLORIDE\SODIUM LACTATE
     Indication: End stage renal disease
     Dosage: UNK
     Route: 033

REACTIONS (6)
  - Peritoneal dialysis complication [Recovered/Resolved]
  - Peritonitis [Unknown]
  - Peritoneal effluent abnormal [Unknown]
  - Abdominal distension [Unknown]
  - General physical health deterioration [Unknown]
  - Vomiting [Unknown]

NARRATIVE: CASE EVENT DATE: 20221128
